APPROVED DRUG PRODUCT: DURANEST
Active Ingredient: EPINEPHRINE BITARTRATE; ETIDOCAINE HYDROCHLORIDE
Strength: 0.005MG/ML;1.5% **Federal Register determination that product was not discontinued or withdrawn for safety or effectiveness reasons**
Dosage Form/Route: INJECTABLE;INJECTION
Application: N021384 | Product #001
Applicant: DENTSPLY PHARMACEUTICAL
Approved: Approved Prior to Jan 1, 1982 | RLD: Yes | RS: No | Type: DISCN